FAERS Safety Report 23964704 (Version 1)
Quarter: 2024Q2

REPORT INFORMATION
  Report Type: Spontaneous
  Country: PL (occurrence: PL)
  Receive Date: 20240612
  Receipt Date: 20240612
  Transmission Date: 20240716
  Serious: Yes (Life-Threatening)
  Sender: FDA-Public Use
  Company Number: None

PATIENT
  Age: 60 Year
  Sex: Male
  Weight: 93 kg

DRUGS (8)
  1. IBUPROFEN [Suspect]
     Active Substance: IBUPROFEN
     Indication: Pain
     Dosage: SINGLE DOSE
     Route: 042
     Dates: start: 20240321, end: 20240321
  2. PROPOFOL [Concomitant]
     Active Substance: PROPOFOL
     Indication: Product used for unknown indication
     Dosage: 180 (NO UNIT)
     Route: 042
     Dates: start: 20240321, end: 20240321
  3. NIMBEX [Concomitant]
     Active Substance: CISATRACURIUM BESYLATE
     Indication: Product used for unknown indication
     Route: 042
     Dates: start: 20240321, end: 20240321
  4. KETAMINA [Concomitant]
     Indication: Product used for unknown indication
     Dosage: 20 (NO UNIT)
     Route: 042
     Dates: start: 20240321, end: 20240321
  5. FENTANYL [Concomitant]
     Active Substance: FENTANYL\FENTANYL CITRATE
     Indication: Product used for unknown indication
     Dosage: 0,3 (NO UNIT)
     Dates: start: 20240321, end: 20240321
  6. METAMIZOLE SODIUM [Suspect]
     Active Substance: METAMIZOLE SODIUM
     Indication: Pain
     Dosage: SINGLE DOSE
     Route: 042
     Dates: start: 20240321, end: 20240321
  7. ACETAMINOPHEN [Concomitant]
     Active Substance: ACETAMINOPHEN
     Indication: Product used for unknown indication
     Route: 042
     Dates: start: 20240321, end: 20240321
  8. ONDANSETRON [Concomitant]
     Active Substance: ONDANSETRON
     Indication: Product used for unknown indication
     Dosage: 8 (NO UNIT)
     Route: 042
     Dates: start: 20240321, end: 20240321

REACTIONS (3)
  - Angioedema [Recovered/Resolved]
  - Oxygen saturation decreased [Recovered/Resolved]
  - Urticaria [Recovered/Resolved]

NARRATIVE: CASE EVENT DATE: 20240321
